FAERS Safety Report 8011340-1 (Version None)
Quarter: 2011Q4

REPORT INFORMATION
  Report Type: 
  Country: None (occurrence: None)
  Receive Date: 20111228
  Receipt Date: 20111228
  Transmission Date: 20120403
  Serious: Yes (Death)
  Sender: FDA-Public Use
  Company Number: None

PATIENT
  Age: 72 Year
  Sex: Male
  Weight: 71.214 kg

DRUGS (2)
  1. PEGFILGRASTIM [Concomitant]
     Dosage: 6 MG
     Route: 058
  2. DECITABINE [Suspect]
     Indication: MYELODYSPLASTIC SYNDROME
     Dosage: 20 MG/M2
     Route: 042
     Dates: start: 20110411, end: 20111027

REACTIONS (1)
  - CHEST PAIN [None]
